FAERS Safety Report 3297688 (Version 4)
Quarter: 2020Q3

REPORT INFORMATION
  Report Type: Spontaneous
  Country: CH (occurrence: None)
  Receive Date: 19990625
  Receipt Date: 20020410
  Transmission Date: 20201104
  Serious: Yes (Life-Threatening)
  Sender: FDA-Public Use
  Company Number: 9925066

PATIENT
  Age: 71 Year
  Sex: Male

DRUGS (25)
  1. ASPEGIC [ACETYLSALICYLATE LYSINE] [Concomitant]
     Active Substance: ASPIRIN DL-LYSINE
  2. CLEXANE [Concomitant]
     Active Substance: ENOXAPARIN SODIUM
  3. SUCRALFATE. [Concomitant]
     Active Substance: SUCRALFATE
  4. VENTOLIN [Concomitant]
     Active Substance: ALBUTEROL SULFATE
  5. POTASSIUM CHLORIDE. [Concomitant]
     Active Substance: POTASSIUM CHLORIDE
  6. DIGOXIN. [Concomitant]
     Active Substance: DIGOXIN
  7. PROPULSID [Concomitant]
     Active Substance: CISAPRIDE
  8. CLARITHROMYCIN. [Suspect]
     Active Substance: CLARITHROMYCIN
     Indication: ATYPICAL PNEUMONIA
     Dosage: 1000.00 MG TOTAL:BID:INTRAVENOUS
     Route: 042
     Dates: start: 19990109, end: 19990112
  9. POTASSIUM CHLORIDE. [Concomitant]
     Active Substance: POTASSIUM CHLORIDE
  10. NORCURON [Concomitant]
     Active Substance: VECURONIUM BROMIDE
  11. LASIX [Concomitant]
     Active Substance: FUROSEMIDE
  12. NOREPINEPHRINE BITARTRATE. [Concomitant]
     Active Substance: NOREPINEPHRINE BITARTRATE
  13. ACTRAPID [Concomitant]
     Active Substance: INSULIN HUMAN
  14. ACETAMINOPHEN. [Concomitant]
     Active Substance: ACETAMINOPHEN
  15. BENERVA [Concomitant]
  16. MAGNESIUM SULFATE. [Concomitant]
     Active Substance: MAGNESIUM SULFATE
  17. PENICILLIN [Concomitant]
     Active Substance: PENICILLIN
  18. ALATROFLOXACIN MESYLATE. [Suspect]
     Active Substance: ALATROFLOXACIN MESYLATE
     Indication: PNEUMONIA
     Dosage: 200.00 MG TOTAL:DAILY:INTRAVENOUS
     Route: 042
     Dates: start: 19990106, end: 19990113
  19. ISOPTIN [Concomitant]
     Active Substance: VERAPAMIL HYDROCHLORIDE
  20. DOPAMINE [Concomitant]
     Active Substance: DOPAMINE HYDROCHLORIDE
  21. MORPHINE [Concomitant]
     Active Substance: MORPHINE
  22. ATROVENT [Concomitant]
     Active Substance: IPRATROPIUM BROMIDE
  23. BECOZYM FORTE [Concomitant]
  24. OXAZEPAM. [Concomitant]
     Active Substance: OXAZEPAM
  25. MIDAZOLAM HYDROCHLORIDE. [Concomitant]
     Active Substance: MIDAZOLAM HYDROCHLORIDE

REACTIONS (9)
  - Multiple organ dysfunction syndrome [None]
  - Aspartate aminotransferase increased [None]
  - Blood alkaline phosphatase increased [None]
  - Gamma-glutamyltransferase increased [None]
  - Acute respiratory distress syndrome [None]
  - Liver disorder [None]
  - Therapeutic product effect decreased [None]
  - Alanine aminotransferase increased [None]
  - Liver function test abnormal [None]

NARRATIVE: CASE EVENT DATE: 19990109
